FAERS Safety Report 15066346 (Version 1)
Quarter: 2018Q2

REPORT INFORMATION
  Report Type: Spontaneous
  Country: FR (occurrence: FR)
  Receive Date: 20180626
  Receipt Date: 20180626
  Transmission Date: 20180711
  Serious: Yes (Hospitalization)
  Sender: FDA-Public Use
  Company Number: FR-ASTRAZENECA-2018SE79504

PATIENT
  Age: 81 Year
  Sex: Female
  Weight: 91.5 kg

DRUGS (11)
  1. SERESTA [Concomitant]
     Active Substance: OXAZEPAM
  2. ACEBUTOLOL [Concomitant]
     Active Substance: ACEBUTOLOL
  3. ESOMEPRAZOLE [Suspect]
     Active Substance: ESOMEPRAZOLE
     Indication: HIATUS HERNIA
     Route: 048
  4. ESIDREX [Suspect]
     Active Substance: HYDROCHLOROTHIAZIDE
     Indication: HYPERTENSION
     Route: 048
     Dates: start: 20170420, end: 20180513
  5. ASPIRINE PROTECT [Concomitant]
     Active Substance: ASPIRIN
  6. SEROPLEX [Suspect]
     Active Substance: ESCITALOPRAM OXALATE
     Indication: DEPRESSION
     Route: 048
  7. PRAVASTATIN SODIUM. [Concomitant]
     Active Substance: PRAVASTATIN SODIUM
  8. PROCORALAN [Concomitant]
     Active Substance: IVABRADINE
  9. MEDIATENSYL [Concomitant]
     Active Substance: URAPIDIL
  10. RAMIPRIL. [Concomitant]
     Active Substance: RAMIPRIL
  11. DAFALGAN [Concomitant]
     Active Substance: ACETAMINOPHEN

REACTIONS (4)
  - Language disorder [Recovered/Resolved]
  - Hyponatraemia [Recovering/Resolving]
  - Hemianopia [Recovered/Resolved]
  - Confusional state [Recovered/Resolved]

NARRATIVE: CASE EVENT DATE: 20180513
